FAERS Safety Report 24762530 (Version 1)
Quarter: 2024Q4

REPORT INFORMATION
  Report Type: Spontaneous
  Country: PY (occurrence: UY)
  Receive Date: 20241221
  Receipt Date: 20241221
  Transmission Date: 20250115
  Serious: Yes (Other)
  Sender: ABBVIE
  Company Number: PY-ABBVIE-6053636

PATIENT
  Age: 75 Year
  Sex: Female

DRUGS (1)
  1. RISANKIZUMAB [Suspect]
     Active Substance: RISANKIZUMAB
     Indication: Psoriasis
     Dosage: INDUCTION
     Route: 058

REACTIONS (1)
  - Cardiac failure [Unknown]
